FAERS Safety Report 7017877 (Version 2)
Quarter: 2014Q3

REPORT INFORMATION
  Report Type: Spontaneous
  Country: US (occurrence: None)
  Receive Date: 20090603
  Receipt Date: 20140926
  Transmission Date: 20150326
  Serious: Yes (Hospitalization, Other)
  Sender: FDA-Public Use
  Company Number: 2009S1004344

PATIENT
  Sex: Female
  Weight: 84.37 kg

DRUGS (4)
  1. IBUPROFEN. [Concomitant]
     Active Substance: IBUPROFEN
  2. PHOSPHO-SODA [Suspect]
     Active Substance: SODIUM PHOSPHATE, DIBASIC\SODIUM PHOSPHATE, MONOBASIC
     Indication: COLONOSCOPY
     Dosage: PO
     Route: 048
     Dates: start: 20050602, end: 20050603
  3. NORVASC [Concomitant]
     Active Substance: AMLODIPINE BESYLATE
  4. DYAZIDE (HYDROCHHLOROTHIAZIDE, TRIAMTERENE) [Concomitant]

REACTIONS (14)
  - Vomiting [None]
  - Nephrocalcinosis [None]
  - Restless legs syndrome [None]
  - Renal tubular necrosis [None]
  - Renal failure [None]
  - Nausea [None]
  - Renal failure acute [None]
  - Hypotension [None]
  - Nephropathy [None]
  - Acute phosphate nephropathy [None]
  - Anaemia [None]
  - Hypovolaemia [None]
  - Fatigue [None]
  - Dehydration [None]

NARRATIVE: CASE EVENT DATE: 20050608
